FAERS Safety Report 14481052 (Version 1)
Quarter: 2018Q1

REPORT INFORMATION
  Report Type: Report from Study
  Country: AR (occurrence: AR)
  Receive Date: 20180202
  Receipt Date: 20180202
  Transmission Date: 20180509
  Serious: Yes (Other)
  Sender: FDA-Public Use
  Company Number: PHHY2018AR015620

PATIENT
  Sex: Female

DRUGS (1)
  1. EXFORGE [Suspect]
     Active Substance: AMLODIPINE BESYLATE\VALSARTAN
     Indication: HYPERTENSION
     Dosage: 1 DF, QD
     Route: 065

REACTIONS (10)
  - Diabetes mellitus [Unknown]
  - Dizziness [Recovering/Resolving]
  - Hyperhidrosis [Recovering/Resolving]
  - Depression [Unknown]
  - Syncope [Recovering/Resolving]
  - Emotional disorder [Unknown]
  - Nervousness [Recovering/Resolving]
  - Tension [Unknown]
  - Blood pressure decreased [Unknown]
  - Blood pressure increased [Recovering/Resolving]
